FAERS Safety Report 10067535 (Version 2)
Quarter: 2014Q2

REPORT INFORMATION
  Report Type: Spontaneous
  Country: JP (occurrence: None)
  Receive Date: 20140407
  Receipt Date: 20140430
  Transmission Date: 20141212
  Serious: Yes (Other)
  Sender: FDA-Public Use
  Company Number: AE-SPE-2014-009

PATIENT
  Age: 1 Year
  Sex: Male

DRUGS (2)
  1. MEIACT MS FINE GRANULES (CEFDITOREN PIVOXIL) [Suspect]
     Indication: PYREXIA
     Route: 048
  2. MEIACT MS FINE GRANULES (CEFDITOREN PIVOXIL) [Suspect]
     Indication: COUGH
     Route: 048

REACTIONS (3)
  - Hypocarnitinaemia [None]
  - Transaminases increased [None]
  - Cytomegalovirus infection [None]
